FAERS Safety Report 5911243-X (Version None)
Quarter: 2008Q4

REPORT INFORMATION
  Report Type: 
  Country: None (occurrence: None)
  Receive Date: 20081007
  Receipt Date: 20080929
  Transmission Date: 20090506
  Serious: Yes (Hospitalization)
  Sender: FDA-Public Use
  Company Number: US-AMGEN-US296078

PATIENT
  Sex: Female
  Weight: 109.9 kg

DRUGS (4)
  1. ENBREL [Suspect]
     Indication: PSORIASIS
     Route: 058
     Dates: start: 20070606
  2. NAPROSYN [Concomitant]
     Route: 065
  3. VICODIN [Concomitant]
     Route: 065
  4. COZAAR [Concomitant]
     Route: 048

REACTIONS (1)
  - NECROTISING FASCIITIS STAPHYLOCOCCAL [None]
